FAERS Safety Report 5145926-9 (Version None)
Quarter: 2006Q4

REPORT INFORMATION
  Report Type: 
  Country: None (occurrence: None)
  Receive Date: 20061108
  Receipt Date: 20061026
  Transmission Date: 20070319
  Serious: Yes (Other)
  Sender: FDA-Public Use
  Company Number: PHBS2006BR16833

PATIENT
  Age: 46 Year
  Sex: Female
  Weight: 68 kg

DRUGS (2)
  1. TEGRETOL [Suspect]
     Indication: EPILEPSY
     Dosage: 400 MG/DAY
     Route: 048
     Dates: start: 20020101
  2. RIVOTRIL [Concomitant]
     Dosage: 2 MG, QD
     Route: 048

REACTIONS (6)
  - DISSOCIATION [None]
  - HYPERSENSITIVITY [None]
  - NAUSEA [None]
  - RASH PAPULAR [None]
  - RETCHING [None]
  - SEDATION [None]
